FAERS Safety Report 10477638 (Version 1)
Quarter: 2014Q3

REPORT INFORMATION
  Report Type: Spontaneous
  Country: US (occurrence: None)
  Receive Date: 20140925
  Receipt Date: 20140925
  Transmission Date: 20150326
  Serious: Yes (Hospitalization)
  Sender: FDA-Public Use
  Company Number: None

PATIENT
  Age: 56 Year
  Sex: Male
  Weight: 98.43 kg

DRUGS (9)
  1. RIBAVIRIN 200 GILEAD SCIENCES, INC. [Suspect]
     Active Substance: RIBAVIRIN
     Indication: HEPATITIS C
     Dosage: 1400?1X DAILY?ORAL
     Route: 048
     Dates: start: 20140310, end: 20140603
  2. PROCRIT [Concomitant]
     Active Substance: ERYTHROPOIETIN
  3. SOVALDI [Concomitant]
     Active Substance: SOFOSBUVIR
  4. LACTULOSE. [Concomitant]
     Active Substance: LACTULOSE
  5. SOVALDI [Suspect]
     Active Substance: SOFOSBUVIR
     Indication: HEPATITIS C
     Dosage: 400?1 X DAILY?ORAL
     Route: 048
     Dates: start: 20140330, end: 20140603
  6. NORCO [Concomitant]
     Active Substance: ACETAMINOPHEN\HYDROCODONE BITARTRATE
  7. POTASSIUM [Concomitant]
     Active Substance: POTASSIUM
  8. ZANAFLEX [Concomitant]
     Active Substance: TIZANIDINE HYDROCHLORIDE
  9. OXYCODONE [Concomitant]
     Active Substance: OXYCODONE

REACTIONS (2)
  - Generalised oedema [None]
  - Anaemia [None]

NARRATIVE: CASE EVENT DATE: 20140521
